FAERS Safety Report 12212303 (Version 4)
Quarter: 2016Q2

REPORT INFORMATION
  Report Type: Report from Study
  Country: US (occurrence: US)
  Receive Date: 20160325
  Receipt Date: 20160506
  Transmission Date: 20160815
  Serious: Yes (Death, Hospitalization)
  Sender: FDA-Public Use
  Company Number: US-ACTELION-A-US2016-133107

PATIENT
  Age: 75 Year
  Sex: Female
  Weight: 61.68 kg

DRUGS (18)
  1. SELEXIPAG [Suspect]
     Active Substance: SELEXIPAG
     Dosage: 1000 MG, BID
     Route: 048
  2. RIOCIGUAT [Concomitant]
     Active Substance: RIOCIGUAT
     Dosage: UNK
     Dates: start: 20150620, end: 20160301
  3. OXYGEN. [Concomitant]
     Active Substance: OXYGEN
     Dosage: 2 L/MIN, UNK
  4. ASPIRIN (E.C.) [Concomitant]
     Active Substance: ASPIRIN
     Dosage: 81 MG, QD
     Dates: end: 201603
  5. PANTOPRAZOLE [Concomitant]
     Active Substance: PANTOPRAZOLE SODIUM
     Dosage: 40 MG, QD
  6. REVATIO [Concomitant]
     Active Substance: SILDENAFIL CITRATE
     Dosage: UNK
     Dates: end: 20150612
  7. SELEXIPAG [Suspect]
     Active Substance: SELEXIPAG
     Indication: PULMONARY HYPERTENSION
     Dosage: 400 MCG, BID
     Route: 048
     Dates: start: 20160226
  8. SELEXIPAG [Suspect]
     Active Substance: SELEXIPAG
     Dosage: 200 MCG, BID
     Route: 048
  9. VITAMIN D3 [Concomitant]
     Active Substance: CHOLECALCIFEROL
     Dosage: 1000 IU, QD
  10. LASIX [Concomitant]
     Active Substance: FUROSEMIDE
     Dosage: 40 MG, QD
  11. LASIX [Concomitant]
     Active Substance: FUROSEMIDE
     Dosage: 20 MG, QD
  12. CIPRO [Concomitant]
     Active Substance: CIPROFLOXACIN HYDROCHLORIDE
     Dosage: 500 MG, BID
  13. OPSUMIT [Suspect]
     Active Substance: MACITENTAN
     Indication: PULMONARY HYPERTENSION
     Dosage: 10 MG, QD
     Route: 048
     Dates: start: 20150702, end: 20160323
  14. SIMVASTATIN. [Concomitant]
     Active Substance: SIMVASTATIN
     Dosage: 10 MG, QD
  15. METOPROLOL TARTRATE. [Concomitant]
     Active Substance: METOPROLOL TARTRATE
     Dosage: 25 MG, UNK
     Dates: start: 201603, end: 201603
  16. LEVOTHYROXINE SODIUM. [Concomitant]
     Active Substance: LEVOTHYROXINE SODIUM
     Dosage: 50 MCG, QD
  17. CITALOPRAM HYDROCHLORIDE [Concomitant]
     Active Substance: CITALOPRAM HYDROCHLORIDE
     Dosage: 20 UNK, QD
  18. CENTRUM SILVER [Concomitant]
     Active Substance: MINERALS\VITAMINS
     Dosage: 1 TABLET, QD
     Dates: end: 201603

REACTIONS (30)
  - Arrhythmia [Fatal]
  - Cardiac failure congestive [Unknown]
  - Respiratory failure [Fatal]
  - Flushing [Unknown]
  - Oedema peripheral [Unknown]
  - Asthenia [Unknown]
  - Back pain [Unknown]
  - Productive cough [Unknown]
  - Malaise [Unknown]
  - Blood magnesium decreased [Unknown]
  - Blood urea increased [Unknown]
  - Rales [Unknown]
  - Chest pain [Unknown]
  - Pulmonary arterial hypertension [Fatal]
  - Headache [Unknown]
  - Troponin increased [Unknown]
  - Fluid overload [Unknown]
  - Disease progression [Fatal]
  - Condition aggravated [Unknown]
  - Dehydration [Unknown]
  - Tachypnoea [Unknown]
  - Dyspnoea exertional [Unknown]
  - Cardiomegaly [Unknown]
  - Acute kidney injury [Unknown]
  - Renal impairment [Unknown]
  - Decreased appetite [Unknown]
  - Dysuria [Unknown]
  - Blood creatinine increased [Unknown]
  - Respiratory distress [Unknown]
  - Treatment noncompliance [Unknown]

NARRATIVE: CASE EVENT DATE: 201603
